FAERS Safety Report 4967513-5 (Version None)
Quarter: 2006Q2

REPORT INFORMATION
  Report Type: 
  Country: None (occurrence: None)
  Receive Date: 20060404
  Receipt Date: 20060320
  Transmission Date: 20061013
  Serious: Yes (Other)
  Sender: FDA-Public Use
  Company Number: GXKR2006GB01658

PATIENT

DRUGS (2)
  1. ALLOPURINOL [Suspect]
     Indication: GOUT
     Dosage: 100 MG, ORAL
     Route: 048
     Dates: start: 20030101, end: 20060301
  2. INDOMETHACIN [Suspect]
     Indication: ANKYLOSING SPONDYLITIS
     Dosage: 75 MG,BID, ORAL
     Route: 048
     Dates: start: 19950101, end: 20060301

REACTIONS (1)
  - THROMBOCYTOPENIA [None]
